FAERS Safety Report 12671222 (Version 1)
Quarter: 2016Q3

REPORT INFORMATION
  Report Type: Spontaneous
  Country: US (occurrence: US)
  Receive Date: 20160822
  Receipt Date: 20160822
  Transmission Date: 20161109
  Serious: No
  Sender: FDA-Public Use
  Company Number: US-TEVA-588663USA

PATIENT
  Sex: Male
  Weight: 74.83 kg

DRUGS (7)
  1. NITROGLYCERIN. [Concomitant]
     Active Substance: NITROGLYCERIN
  2. METOPROLOL. [Concomitant]
     Active Substance: METOPROLOL
  3. COPPER [Concomitant]
     Active Substance: COPPER
     Dates: start: 201508
  4. ZINC [Concomitant]
     Active Substance: ZINC\ZINC CHLORIDE
     Dates: start: 201508
  5. FEXOFENADINE [Suspect]
     Active Substance: FEXOFENADINE\FEXOFENADINE HYDROCHLORIDE
     Indication: URTICARIA
     Dosage: 90 MILLIGRAM DAILY; 1/2 TABLET
     Route: 048
     Dates: start: 2014
  6. VITAMIN E [Concomitant]
     Active Substance: .ALPHA.-TOCOPHEROL
     Dates: start: 201508
  7. VITAMIN C [Concomitant]
     Active Substance: ASCORBIC ACID
     Dates: start: 201508

REACTIONS (4)
  - Drug administered to patient of inappropriate age [Unknown]
  - Wrong technique in product usage process [Unknown]
  - Off label use [Unknown]
  - Drug effect decreased [Unknown]

NARRATIVE: CASE EVENT DATE: 2014
